FAERS Safety Report 7682400-X (Version None)
Quarter: 2011Q3

REPORT INFORMATION
  Report Type: 
  Country: None (occurrence: None)
  Receive Date: 20110815
  Receipt Date: 20110808
  Transmission Date: 20111222
  Serious: Yes (Congenital Anomaly)
  Sender: FDA-Public Use
  Company Number: IT-BRISTOL-MYERS SQUIBB COMPANY-13709290

PATIENT
  Age: 1 Day

DRUGS (1)
  1. EFAVIRENZ [Suspect]
     Indication: HIV INFECTION
     Dosage: NO OF COURSE:1
     Route: 064

REACTIONS (2)
  - TALIPES [None]
  - PREGNANCY [None]
